FAERS Safety Report 13506909 (Version 1)
Quarter: 2017Q2

REPORT INFORMATION
  Report Type: Spontaneous
  Country: US (occurrence: US)
  Receive Date: 20170502
  Receipt Date: 20170502
  Transmission Date: 20170830
  Serious: No
  Sender: FDA-Public Use
  Company Number: US-BAUSCH-BL-2016-023054

PATIENT
  Age: 68 Year
  Sex: Female

DRUGS (1)
  1. ALREX [Suspect]
     Active Substance: LOTEPREDNOL ETABONATE
     Indication: RHEUMATOID ARTHRITIS
     Dosage: 1 DROP AS NEEDED
     Route: 047

REACTIONS (2)
  - Therapeutic response unexpected [Unknown]
  - Off label use [Unknown]
